APPROVED DRUG PRODUCT: BREYNA
Active Ingredient: BUDESONIDE; FORMOTEROL FUMARATE DIHYDRATE
Strength: 0.08MG/INH;0.0045MG/INH
Dosage Form/Route: AEROSOL, METERED;INHALATION
Application: A211699 | Product #001 | TE Code: AB
Applicant: MYLAN PHARMACEUTICALS INC
Approved: Mar 15, 2022 | RLD: No | RS: No | Type: RX